FAERS Safety Report 13761817 (Version 2)
Quarter: 2017Q3

REPORT INFORMATION
  Report Type: Spontaneous
  Country: BR (occurrence: BR)
  Receive Date: 20170718
  Receipt Date: 20170902
  Transmission Date: 20171127
  Serious: Yes (Death, Hospitalization, Other)
  Sender: FDA-Public Use
  Company Number: BR-AMGEN-BRASP2013028883

PATIENT
  Age: 32 Year
  Sex: Female
  Weight: 57 kg

DRUGS (7)
  1. OMEPRAZOLE. [Concomitant]
     Active Substance: OMEPRAZOLE
     Dosage: (STRENGTH 20 MG), ONE TABLET ONCE DAILY
     Route: 048
  2. CALDE [Concomitant]
     Active Substance: CALCIUM CARBONATE\CHOLECALCIFEROL
     Dosage: (STRENGTH 600 MG/400 MG), ONE TABLET
  3. METHOTREXATE. [Concomitant]
     Active Substance: METHOTREXATE
     Dosage: (STRENGTH 25 MG) 25 MG, ONCE WEEKLY
     Route: 058
  4. ENBREL [Suspect]
     Active Substance: ETANERCEPT
     Indication: RHEUMATOID ARTHRITIS
     Dosage: 50 MG, ONCE WEEKLY
     Route: 058
     Dates: start: 20130228
  5. FERROUS SULFATE. [Concomitant]
     Active Substance: FERROUS SULFATE
     Dosage: (STRENGTH 50 MG), ^ONE TABLET 2X
  6. PREDNISONE. [Concomitant]
     Active Substance: PREDNISONE
     Dosage: (STRENGTH 5 MG), ONE TABLET TWICE DAILY
     Route: 048
  7. FOLIC ACID. [Concomitant]
     Active Substance: FOLIC ACID
     Dosage: UNK, STRENGTH  5MG

REACTIONS (15)
  - Rash macular [Unknown]
  - Asthenia [Unknown]
  - Somnolence [Unknown]
  - Hyperhidrosis [Unknown]
  - Throat tightness [Unknown]
  - Drug ineffective [Not Recovered/Not Resolved]
  - Coma [Unknown]
  - Injection site erythema [Unknown]
  - Laryngeal stenosis [Fatal]
  - Dyspnoea [Unknown]
  - Influenza [Not Recovered/Not Resolved]
  - Cough [Unknown]
  - Delirium [Unknown]
  - Hyperthyroidism [Unknown]
  - Swelling face [Unknown]

NARRATIVE: CASE EVENT DATE: 201408
